FAERS Safety Report 5636542-0 (Version None)
Quarter: 2008Q1

REPORT INFORMATION
  Report Type: 
  Country: None (occurrence: None)
  Receive Date: 20080225
  Receipt Date: 20080215
  Transmission Date: 20080703
  Serious: Yes (Other)
  Sender: FDA-Public Use
  Company Number: US-ALLERGAN-0801884US

PATIENT
  Sex: Female

DRUGS (1)
  1. BOTOX COSMETIC [Suspect]
     Indication: SKIN WRINKLING
     Dosage: UNK, SINGLE
     Route: 030
     Dates: start: 20080110, end: 20080110

REACTIONS (8)
  - DISSOCIATION [None]
  - FACE OEDEMA [None]
  - HYPERHIDROSIS [None]
  - MUSCULAR WEAKNESS [None]
  - OEDEMA MOUTH [None]
  - PYREXIA [None]
  - THROAT TIGHTNESS [None]
  - VISUAL DISTURBANCE [None]
